FAERS Safety Report 5276999-0 (Version None)
Quarter: 2007Q1

REPORT INFORMATION
  Report Type: 
  Country: None (occurrence: None)
  Receive Date: 20061213
  Receipt Date: 20050125
  Transmission Date: 20070707
  Serious: Yes (Hospitalization)
  Sender: FDA-Public Use
  Company Number: 2005UW00093

PATIENT
  Age: 48 Year
  Sex: Male

DRUGS (4)
  1. SEROQUEL [Suspect]
     Indication: DEPRESSION
     Dosage: 300 MG HS; PO
     Route: 048
  2. DEPAKOTE [Concomitant]
  3. EFFEXOR XR [Concomitant]
  4. VICODIN [Concomitant]

REACTIONS (1)
  - PRIAPISM [None]
